FAERS Safety Report 20147990 (Version 3)
Quarter: 2022Q1

REPORT INFORMATION
  Report Type: Spontaneous
  Country: ES (occurrence: ES)
  Receive Date: 20211204
  Receipt Date: 20220302
  Transmission Date: 20220423
  Serious: Yes (Hospitalization, Other)
  Sender: FDA-Public Use
  Company Number: ES-SA-SAC20211019000224

PATIENT
  Age: 71 Year
  Sex: Male
  Weight: 86 kg

DRUGS (13)
  1. IRINOTECAN [Suspect]
     Active Substance: IRINOTECAN
     Indication: Colon cancer
     Dosage: 292.5 MILLIGRAM(292.5 MG, QOW) (TWO TIMES WEEK)
     Route: 042
     Dates: start: 20210908, end: 20210908
  2. IRINOTECAN [Suspect]
     Active Substance: IRINOTECAN
     Dosage: 292.5 MILLIGRAM(292.5 MG, QOW) (TWO TIMES A WEEK)
     Route: 042
     Dates: start: 20210924, end: 20210924
  3. AFLIBERCEPT [Suspect]
     Active Substance: AFLIBERCEPT
     Indication: Colon cancer
     Dosage: 340 MILLIGRAM (TWO TIMES A WEEK)(340 MG, QOW)
     Route: 042
     Dates: start: 20210908, end: 20210908
  4. AFLIBERCEPT [Suspect]
     Active Substance: AFLIBERCEPT
     Dosage: 340 MILLIGRAM (TWO TIMES A WEEK)(340 MG, QOW)
     Route: 042
     Dates: start: 20210924, end: 20210924
  5. LEUCOVORIN [Suspect]
     Active Substance: LEUCOVORIN
     Indication: Colon cancer
     Dosage: 780 MILLIGRAM(780 MG, QOW) (TWO TIMES A WEEK)
     Route: 042
     Dates: start: 20210908, end: 20210908
  6. LEUCOVORIN [Suspect]
     Active Substance: LEUCOVORIN
     Dosage: 780 MILLIGRAM(780 MG, QOW) (TWO TIMES WEEK)
     Route: 042
     Dates: start: 20210924, end: 20210924
  7. FLUOROURACIL [Suspect]
     Active Substance: FLUOROURACIL
     Indication: Colon cancer
     Dosage: 3900 MILLIGRAM (3900 MG, QOW) (TWO TIMES A WEEK)
     Route: 042
     Dates: start: 20210908, end: 20210908
  8. FLUOROURACIL [Suspect]
     Active Substance: FLUOROURACIL
     Dosage: 585 MILLIGRAM (TWO TIMES A WEEK)(585 MG, QOW)
     Route: 040
     Dates: start: 20210908, end: 20210908
  9. FLUOROURACIL [Suspect]
     Active Substance: FLUOROURACIL
     Dosage: 585 MILLIGRAM(TWO TIMES A WEEK)(585 MG, QOW)
     Route: 040
     Dates: start: 20210924, end: 20210924
  10. FLUOROURACIL [Suspect]
     Active Substance: FLUOROURACIL
     Dosage: 3900 MILLIGRAM(TWO TIMES A WEEK)(3900 MG, QOW)
     Route: 042
     Dates: start: 20210924, end: 20210924
  11. PREDNISONE [Concomitant]
     Active Substance: PREDNISONE
     Indication: Renal transplant
     Dosage: 5 MILLIGRAM, ONCE A DAY (5 MG, QD)
     Route: 048
     Dates: start: 1998
  12. CERTICAN [Concomitant]
     Active Substance: EVEROLIMUS
     Indication: Renal transplant
     Dosage: 0.15 MILLIGRAM, ONCE A DAY (0.15 MG, QD)
     Route: 048
     Dates: start: 1998
  13. TACROLIMUS [Concomitant]
     Active Substance: TACROLIMUS
     Indication: Renal transplant
     Dosage: 1 MILLIGRAM, ONCE A DAY (1 MG, QD)
     Route: 048
     Dates: start: 1998

REACTIONS (3)
  - Febrile neutropenia [Recovered/Resolved]
  - Glomerulonephritis membranoproliferative [Recovered/Resolved]
  - Urinary tract infection [Not Recovered/Not Resolved]

NARRATIVE: CASE EVENT DATE: 20211011
